FAERS Safety Report 22043375 (Version 1)
Quarter: 2023Q1

REPORT INFORMATION
  Report Type: Report from Study
  Country: MA (occurrence: MA)
  Receive Date: 20230228
  Receipt Date: 20230228
  Transmission Date: 20230417
  Serious: Yes (Other)
  Sender: FDA-Public Use
  Company Number: MA-JNJFOC-20230252346

PATIENT
  Age: 69 Year
  Sex: Male

DRUGS (2)
  1. ZYTIGA [Suspect]
     Active Substance: ABIRATERONE ACETATE
     Indication: Hormone-dependent prostate cancer
     Route: 048
  2. GONADORELIN [Suspect]
     Active Substance: GONADORELIN
     Indication: Hormone-dependent prostate cancer
     Route: 065

REACTIONS (1)
  - Hormone-dependent prostate cancer [Unknown]

NARRATIVE: CASE EVENT DATE: 20220101
